FAERS Safety Report 15700729 (Version 2)
Quarter: 2019Q1

REPORT INFORMATION
  Report Type: Spontaneous
  Country: US (occurrence: US)
  Receive Date: 20181207
  Receipt Date: 20190206
  Transmission Date: 20190417
  Serious: Yes (Other)
  Sender: FDA-Public Use
  Company Number: US-SA-2018SA331269

PATIENT
  Age: 43 Year
  Sex: Female
  Weight: 99.8 kg

DRUGS (10)
  1. ADRIAMYCIN [Concomitant]
     Active Substance: DOXORUBICIN HYDROCHLORIDE
  2. NEULASTA [Concomitant]
     Active Substance: PEGFILGRASTIM
  3. TAXOTERE [Suspect]
     Active Substance: DOCETAXEL
     Indication: BREAST CANCER
     Dosage: 143 MG, 150 MG
     Route: 042
     Dates: start: 20111208, end: 20111208
  4. NEOSAR [Concomitant]
     Active Substance: CYCLOPHOSPHAMIDE
  5. TAXOTERE [Suspect]
     Active Substance: DOCETAXEL
     Dosage: 143 MG, 150 MG
     Route: 042
     Dates: start: 20120322, end: 20120322
  6. ALOXI [Concomitant]
     Active Substance: PALONOSETRON HYDROCHLORIDE
  7. EMEND [Concomitant]
     Active Substance: APREPITANT
  8. BENADRYL [Concomitant]
     Active Substance: DIPHENHYDRAMINE HYDROCHLORIDE
  9. CYTOXAN [Concomitant]
     Active Substance: CYCLOPHOSPHAMIDE
  10. DECADRON [Concomitant]
     Active Substance: DEXAMETHASONE

REACTIONS (1)
  - Alopecia [Not Recovered/Not Resolved]

NARRATIVE: CASE EVENT DATE: 20120922
